FAERS Safety Report 12261044 (Version 1)
Quarter: 2016Q2

REPORT INFORMATION
  Report Type: Spontaneous
  Country: US (occurrence: None)
  Receive Date: 20160412
  Receipt Date: 20160412
  Transmission Date: 20160815
  Serious: Yes (Death)
  Sender: FDA-Public Use
  Company Number: None

PATIENT
  Sex: Female
  Weight: 75.3 kg

DRUGS (5)
  1. HEPARIN [Concomitant]
     Active Substance: HEPARIN SODIUM
  2. ALTEPLASE, 5 MG/250 ML [Suspect]
     Active Substance: ALTEPLASE
     Indication: THROMBOLYSIS
     Dosage: PER HR
     Route: 041
     Dates: start: 20151231, end: 20160102
  3. ASA [Concomitant]
     Active Substance: ASPIRIN
  4. ASA/ACETAMINOPHEN/CAFFEINE [Concomitant]
  5. ENOXAPARIN, 100MG [Suspect]
     Active Substance: ENOXAPARIN
     Indication: EMBOLISM VENOUS
     Route: 058
     Dates: start: 20160103, end: 20160115

REACTIONS (5)
  - No therapeutic response [None]
  - Cerebral haemorrhage [None]
  - Laryngeal oedema [None]
  - Pyrexia [None]
  - Laryngeal stenosis [None]
